FAERS Safety Report 25971469 (Version 1)
Quarter: 2025Q4

REPORT INFORMATION
  Report Type: Spontaneous
  Country: JP (occurrence: JP)
  Receive Date: 20251028
  Receipt Date: 20251028
  Transmission Date: 20260117
  Serious: Yes (Other)
  Sender: JOHNSON AND JOHNSON
  Company Number: JP-JNJFOC-20251018490

PATIENT
  Age: 62 Year
  Sex: Female

DRUGS (6)
  1. INVEGA [Suspect]
     Active Substance: PALIPERIDONE
     Indication: Schizophrenia
     Route: 048
     Dates: start: 20240912, end: 20250819
  2. INVEGA [Suspect]
     Active Substance: PALIPERIDONE
     Route: 048
     Dates: start: 20250820, end: 20250903
  3. INVEGA [Suspect]
     Active Substance: PALIPERIDONE
     Route: 048
     Dates: start: 20250904, end: 20251001
  4. INVEGA [Suspect]
     Active Substance: PALIPERIDONE
     Route: 048
     Dates: start: 20251002, end: 20251007
  5. INVEGA [Suspect]
     Active Substance: PALIPERIDONE
     Route: 048
     Dates: start: 20251008
  6. REXULTI [Suspect]
     Active Substance: BREXPIPRAZOLE
     Indication: Product used for unknown indication
     Route: 065

REACTIONS (2)
  - Prescribed overdose [Recovered/Resolved]
  - Atrial fibrillation [Recovered/Resolved]

NARRATIVE: CASE EVENT DATE: 20251002
